FAERS Safety Report 14726242 (Version 2)
Quarter: 2018Q2

REPORT INFORMATION
  Report Type: Spontaneous
  Country: US (occurrence: US)
  Receive Date: 20180406
  Receipt Date: 20180411
  Transmission Date: 20180711
  Serious: No
  Sender: FDA-Public Use
  Company Number: US-009507513-1804USA001080

PATIENT
  Sex: Female

DRUGS (2)
  1. TRUSOPT [Suspect]
     Active Substance: DORZOLAMIDE HYDROCHLORIDE
     Indication: VISUAL IMPAIRMENT
     Dosage: ONE DROP TWICE A DAY
     Dates: start: 1970, end: 20180329
  2. DORZOLAMIDE HYDROCHLORIDE (+) TIMOLOL MALEATE [Suspect]
     Active Substance: DORZOLAMIDE HYDROCHLORIDE\TIMOLOL MALEATE
     Indication: VISUAL IMPAIRMENT
     Dosage: ONE DROP TWICE A DAY
     Dates: start: 1970, end: 20180329

REACTIONS (4)
  - Drug dose omission [Unknown]
  - Eye irritation [Unknown]
  - Product availability issue [Unknown]
  - Eye discharge [Unknown]

NARRATIVE: CASE EVENT DATE: 201803
